FAERS Safety Report 10503845 (Version 1)
Quarter: 2014Q4

REPORT INFORMATION
  Report Type: Spontaneous
  Country: US (occurrence: None)
  Receive Date: 20141007
  Receipt Date: 20141007
  Transmission Date: 20150528
  Serious: Yes (Other)
  Sender: FDA-Public Use
  Company Number: None

PATIENT
  Age: 65 Year
  Sex: Female
  Weight: 55 kg

DRUGS (2)
  1. VERSED [Suspect]
     Active Substance: MIDAZOLAM HYDROCHLORIDE
     Indication: SEDATION
     Dosage: 1 MG PRN/AS NEEDED INTRAVNEOUS
     Route: 042
     Dates: start: 20141001, end: 20141001
  2. FENTANYL. [Suspect]
     Active Substance: FENTANYL
     Indication: ANALGESIC THERAPY
     Dosage: 25 MCGS PR/ AS NEEDED INTRAVANEOUS
     Route: 042
     Dates: start: 20141001, end: 20141001

REACTIONS (1)
  - Confusional state [None]

NARRATIVE: CASE EVENT DATE: 20141001
